FAERS Safety Report 15422056 (Version 1)
Quarter: 2018Q3

REPORT INFORMATION
  Report Type: Report from Study
  Country: FR (occurrence: FR)
  Receive Date: 20180924
  Receipt Date: 20180924
  Transmission Date: 20181010
  Serious: Yes (Hospitalization, Other)
  Sender: FDA-Public Use
  Company Number: FR-GILEAD-2018-0360408

PATIENT
  Sex: Female
  Weight: 68 kg

DRUGS (5)
  1. AXICABTAGENE CILOLEUCEL [Suspect]
     Active Substance: AXICABTAGENE CILOLEUCEL
     Indication: NON-HODGKIN^S LYMPHOMA REFRACTORY
     Dosage: 68 ML, UNK
     Route: 042
     Dates: start: 20180823, end: 20180823
  2. TOCILIZUMAB. [Concomitant]
     Active Substance: TOCILIZUMAB
     Dosage: UNK
  3. CYCLOPHOSPHAMIDE. [Suspect]
     Active Substance: CYCLOPHOSPHAMIDE
     Indication: BONE MARROW CONDITIONING REGIMEN
     Dosage: 865 MG, QD
     Route: 042
     Dates: start: 20180818, end: 20180820
  4. FLUDARABINE [Suspect]
     Active Substance: FLUDARABINE PHOSPHATE
     Indication: BONE MARROW CONDITIONING REGIMEN
     Dosage: 50.7 MG, QD
     Route: 042
     Dates: start: 20180818, end: 20180820
  5. DEXAMETHASONE. [Concomitant]
     Active Substance: DEXAMETHASONE

REACTIONS (4)
  - Encephalopathy [Not Recovered/Not Resolved]
  - Meningitis [Recovered/Resolved]
  - Myelitis [Unknown]
  - Quadriplegia [Unknown]

NARRATIVE: CASE EVENT DATE: 20180827
